FAERS Safety Report 9707851 (Version 1)
Quarter: 2013Q4

REPORT INFORMATION
  Report Type: Spontaneous
  Country: US (occurrence: None)
  Receive Date: 20131122
  Receipt Date: 20131122
  Transmission Date: 20140711
  Serious: Yes (Hospitalization)
  Sender: FDA-Public Use
  Company Number: None

PATIENT
  Age: 73 Year
  Sex: Female
  Weight: 108 kg

DRUGS (25)
  1. AZACITIDINE [Suspect]
     Indication: ACUTE MYELOID LEUKAEMIA
     Route: 058
     Dates: start: 20131120, end: 20131120
  2. DEFERASIROX [Suspect]
     Indication: ACUTE MYELOID LEUKAEMIA
     Route: 048
  3. ENOXAPARIN [Concomitant]
  4. MAGNESIUM SULFATE [Concomitant]
  5. ALLOPURINOL [Concomitant]
  6. SERTRALINE [Concomitant]
  7. LOSARTAN [Concomitant]
  8. INSULIN LISPRO  1-21 UNITS INJECTION [Concomitant]
  9. POTASSIUM CHLORIDE [Concomitant]
  10. ATORVASTATIN [Concomitant]
  11. ASPIRIN [Concomitant]
  12. DEFERASIROX [Concomitant]
  13. ODANSETRON [Concomitant]
  14. FUROSEMIDE [Concomitant]
  15. CEFTRIAXONE [Concomitant]
  16. POTASSIUM CHLORIDE [Concomitant]
  17. AZACITIDINE [Concomitant]
  18. NACL [Concomitant]
  19. CIPROFLOXACIN [Concomitant]
  20. HEPARIN [Concomitant]
  21. ODANSETRON [Concomitant]
  22. TRIAMCINOLONE ACETONIDE [Concomitant]
  23. WARFARIN [Concomitant]
  24. NACL [Concomitant]
  25. METROPOLOL [Concomitant]

REACTIONS (5)
  - Palpitations [None]
  - Diarrhoea [None]
  - Atrial fibrillation [None]
  - Dehydration [None]
  - Decreased appetite [None]
